FAERS Safety Report 12898163 (Version 2)
Quarter: 2016Q4

REPORT INFORMATION
  Report Type: Spontaneous
  Country: SE (occurrence: SE)
  Receive Date: 20161031
  Receipt Date: 20161107
  Transmission Date: 20170207
  Serious: Yes (Hospitalization)
  Sender: FDA-Public Use
  Company Number: SE-BRACCO-000243

PATIENT
  Age: 76 Year
  Sex: Female

DRUGS (1)
  1. MULTIHANCE [Suspect]
     Active Substance: GADOBENATE DIMEGLUMINE
     Indication: ANGIOGRAM
     Route: 042
     Dates: start: 20161013, end: 20161013

REACTIONS (5)
  - Malaise [Unknown]
  - Fumbling [Unknown]
  - Muscular weakness [Unknown]
  - Hypoaesthesia [Unknown]
  - Confusional state [Unknown]

NARRATIVE: CASE EVENT DATE: 20161014
